FAERS Safety Report 10309454 (Version 2)
Quarter: 2014Q3

REPORT INFORMATION
  Report Type: Spontaneous
  Country: US (occurrence: US)
  Receive Date: 20140716
  Receipt Date: 20140716
  Transmission Date: 20150326
  Serious: No
  Sender: FDA-Public Use
  Company Number: US-GILEAD-2014-0108052

PATIENT
  Sex: Male

DRUGS (2)
  1. SOVALDI [Suspect]
     Active Substance: SOFOSBUVIR
     Indication: HEPATITIS C
     Dosage: UNK UNK, BID
     Route: 048
  2. SOVALDI [Suspect]
     Active Substance: SOFOSBUVIR
     Dosage: UNK, QD
     Route: 048
     Dates: start: 20140612

REACTIONS (1)
  - Overdose [Recovered/Resolved]
